FAERS Safety Report 8446306-0 (Version None)
Quarter: 2012Q2

REPORT INFORMATION
  Report Type: 
  Country: None (occurrence: None)
  Receive Date: 20120618
  Receipt Date: 20120608
  Transmission Date: 20120825
  Serious: Yes (Hospitalization)
  Sender: FDA-Public Use
  Company Number: CA-FRI-1000027127

PATIENT
  Age: 25 Year
  Sex: Female

DRUGS (4)
  1. AMITRIPTYLINE HCL [Suspect]
     Dosage: 10 MG
     Route: 048
  2. MAVIK [Suspect]
     Indication: BLOOD PRESSURE MANAGEMENT
     Route: 048
     Dates: start: 20110401
  3. STOOL SOFTENERS [Concomitant]
  4. ESCITALOPRAM [Suspect]
     Route: 048

REACTIONS (1)
  - CONVULSION [None]
